FAERS Safety Report 16318473 (Version 2)
Quarter: 2019Q2

REPORT INFORMATION
  Report Type: Spontaneous
  Country: BR (occurrence: BR)
  Receive Date: 20190516
  Receipt Date: 20190606
  Transmission Date: 20190711
  Serious: Yes (Other)
  Sender: FDA-Public Use
  Company Number: BR-TEVA-2019-BR-1049927

PATIENT
  Sex: Female
  Weight: 63 kg

DRUGS (9)
  1. CAPECITABINE. [Concomitant]
     Active Substance: CAPECITABINE
     Dosage: XELOX PROTOCOL
     Route: 065
  2. PRESSAT 5 MG [Concomitant]
     Dosage: 5 MILLIGRAM DAILY;
  3. MICARDIS ANLO 80.5 MG [Concomitant]
     Dosage: 80/5 MG
  4. PRISTIQ EXTENDED-RELEASE [Concomitant]
     Active Substance: DESVENLAFAXINE SUCCINATE
  5. TEVAOXALI [Suspect]
     Active Substance: OXALIPLATIN
     Indication: COLON CANCER
     Dosage: XELOX PROTOCOL
     Route: 042
     Dates: start: 20190426
  6. MODURETIC 25/ 2.5 [Concomitant]
     Dosage: IN THE MORNING
  7. ZODEL 100 MG [Concomitant]
     Dosage: 100 MILLIGRAM DAILY;
  8. ROSUCOR 10 MG [Concomitant]
     Dosage: 10 MILLIGRAM DAILY; AT NIGHT
  9. RIVOTRIL [Concomitant]
     Active Substance: CLONAZEPAM
     Dosage: 1 TABLET PER NIGHT AS SOS

REACTIONS (4)
  - Infusion site discomfort [Unknown]
  - Pain [Unknown]
  - Hyperaesthesia [Unknown]
  - Injury [Unknown]
